FAERS Safety Report 4951091-0 (Version None)
Quarter: 2006Q1

REPORT INFORMATION
  Report Type: 
  Country: None (occurrence: None)
  Receive Date: 20060322
  Receipt Date: 20060316
  Transmission Date: 20060701
  Serious: Yes (Hospitalization)
  Sender: FDA-Public Use
  Company Number: GB-MERCK-0603GBR00069

PATIENT
  Age: 54 Year
  Sex: Female

DRUGS (1)
  1. ZOCOR [Suspect]
     Route: 048
     Dates: start: 19990916, end: 19990916

REACTIONS (3)
  - HYPERSENSITIVITY [None]
  - PRURITUS [None]
  - URTICARIA CHRONIC [None]
